FAERS Safety Report 6165188-3 (Version None)
Quarter: 2009Q2

REPORT INFORMATION
  Report Type: 
  Country: None (occurrence: None)
  Receive Date: 20090421
  Receipt Date: 20090414
  Transmission Date: 20091009
  Serious: Yes (Hospitalization)
  Sender: FDA-Public Use
  Company Number: FRP09000447

PATIENT
  Age: 70 Year
  Sex: Female

DRUGS (5)
  1. ACTONEL [Suspect]
     Indication: OSTEOPOROSIS
     Dosage: 35 MG, 1 /WEEK, ORAL
     Route: 048
  2. EZETIMIBE [Concomitant]
  3. EFFEXOR /01233801/ (VENLAFAXINE) [Concomitant]
  4. OROCAL D3 (CALCIUM CARBONATE, COLECALCIFEROL) [Concomitant]
  5. COLPOTROPHINE (PROMESTRIENE) [Concomitant]

REACTIONS (5)
  - APHTHOUS STOMATITIS [None]
  - ASTHENIA [None]
  - DYSPHAGIA [None]
  - RASH ERYTHEMATOUS [None]
  - TRACHEITIS [None]
